FAERS Safety Report 9159922 (Version 2)
Quarter: 2013Q1

REPORT INFORMATION
  Report Type: Spontaneous
  Country: US (occurrence: US)
  Receive Date: 20130313
  Receipt Date: 20130329
  Transmission Date: 20140127
  Serious: Yes (Other)
  Sender: FDA-Public Use
  Company Number: US-PFIZER INC-2013082733

PATIENT
  Age: 62 Year
  Sex: Female

DRUGS (1)
  1. RELPAX [Suspect]
     Indication: MIGRAINE
     Dosage: 40 MG, (AT THE ONSET, MAY REPEAT IN 2 HOURS IF NEEDED)

REACTIONS (1)
  - Eye disorder [Unknown]
